FAERS Safety Report 16547479 (Version 2)
Quarter: 2020Q3

REPORT INFORMATION
  Report Type: Spontaneous
  Country: US (occurrence: US)
  Receive Date: 20190709
  Receipt Date: 20200709
  Transmission Date: 20201102
  Serious: No
  Sender: FDA-Public Use
  Company Number: US-ASTELLAS-2019US023580

PATIENT
  Age: 88 Year
  Sex: Female

DRUGS (2)
  1. MYRBETRIQ [Suspect]
     Active Substance: MIRABEGRON
     Indication: PRODUCT USED FOR UNKNOWN INDICATION
     Route: 048
     Dates: start: 201812
  2. MYRBETRIQ [Suspect]
     Active Substance: MIRABEGRON
     Route: 048
     Dates: start: 20190528

REACTIONS (4)
  - Burning sensation [Not Recovered/Not Resolved]
  - Inability to afford medication [Unknown]
  - Constipation [Recovered/Resolved]
  - Product dose omission issue [Unknown]
